FAERS Safety Report 18174142 (Version 1)
Quarter: 2020Q3

REPORT INFORMATION
  Report Type: Spontaneous
  Country: US (occurrence: US)
  Receive Date: 20200819
  Receipt Date: 20200819
  Transmission Date: 20201103
  Serious: Yes (Disabling)
  Sender: FDA-Public Use
  Company Number: None

PATIENT
  Age: 25 Year
  Sex: Female
  Weight: 47.25 kg

DRUGS (2)
  1. BUSPAR [Suspect]
     Active Substance: BUSPIRONE HYDROCHLORIDE
     Indication: ANXIETY
     Dosage: ;OTHER FREQUENCY:3X DAILY AS NEEDED;?
     Route: 048
     Dates: start: 20180306, end: 20181120
  2. TRAZODONE [Concomitant]
     Active Substance: TRAZODONE HYDROCHLORIDE

REACTIONS (9)
  - Insomnia [None]
  - Hyperhidrosis [None]
  - Nausea [None]
  - Tremor [None]
  - Fatigue [None]
  - Asthenia [None]
  - Headache [None]
  - Dizziness [None]
  - Photophobia [None]
